FAERS Safety Report 7709148-7 (Version None)
Quarter: 2011Q3

REPORT INFORMATION
  Report Type: 
  Country: None (occurrence: None)
  Receive Date: 20110825
  Receipt Date: 20110817
  Transmission Date: 20111222
  Serious: Yes (Hospitalization, Disabling, Other)
  Sender: FDA-Public Use
  Company Number: GB-JNJFOC-20110808980

PATIENT
  Age: 46 Year
  Sex: Male
  Weight: 128 kg

DRUGS (1)
  1. INFLIXIMAB, RECOMBINANT [Suspect]
     Indication: PSORIASIS
     Route: 042
     Dates: start: 20100601

REACTIONS (3)
  - ERYTHRODERMIC PSORIASIS [None]
  - CARDIAC FAILURE CONGESTIVE [None]
  - PSORIATIC ARTHROPATHY [None]
